FAERS Safety Report 5481561-0 (Version None)
Quarter: 2007Q4

REPORT INFORMATION
  Report Type: 
  Country: None (occurrence: None)
  Receive Date: 20071010
  Receipt Date: 20070914
  Transmission Date: 20080405
  Serious: Yes (Other)
  Sender: FDA-Public Use
  Company Number: JP-BAYER-200715112GDS

PATIENT
  Age: 76 Year
  Sex: Male
  Weight: 51 kg

DRUGS (9)
  1. AVELOX [Suspect]
     Indication: PNEUMONIA LEGIONELLA
     Route: 048
     Dates: start: 20060202, end: 20060209
  2. CEFTAZIDIME [Concomitant]
     Indication: PNEUMONIA
     Dosage: TOTAL DAILY DOSE: 6 G  UNIT DOSE: 2 G
     Route: 065
     Dates: start: 20060102, end: 20060104
  3. AMIKACIN [Concomitant]
     Indication: PNEUMONIA
     Dosage: TOTAL DAILY DOSE: 800 MG
     Route: 065
     Dates: start: 20060101, end: 20060101
  4. VANCOMYCIN [Concomitant]
     Indication: PNEUMONIA
     Dosage: TOTAL DAILY DOSE: 2 G
     Route: 065
     Dates: start: 20060101, end: 20060101
  5. CIPROFLOXACIN [Concomitant]
     Indication: PNEUMONIA
     Dosage: TOTAL DAILY DOSE: 900 MG
     Route: 065
     Dates: start: 20060101, end: 20060201
  6. LEVOFLOXACIN [Concomitant]
     Indication: PNEUMONIA LEGIONELLA
     Route: 065
     Dates: start: 20060101, end: 20060101
  7. LOXONIN [Concomitant]
     Indication: PROCEDURAL PAIN
     Dosage: TOTAL DAILY DOSE: 180 MG
     Route: 048
     Dates: start: 20060130
  8. SELBEX [Concomitant]
     Indication: PROCEDURAL PAIN
     Dosage: TOTAL DAILY DOSE: 1.5 G
     Route: 048
     Dates: start: 20060130
  9. VASOLAN [Concomitant]
     Indication: TACHYARRHYTHMIA
     Dosage: TOTAL DAILY DOSE: 120 MG
     Route: 048
     Dates: start: 20060201, end: 20060206

REACTIONS (2)
  - ELECTROCARDIOGRAM QT PROLONGED [None]
  - HEART RATE DECREASED [None]
